FAERS Safety Report 8585697-7 (Version None)
Quarter: 2012Q3

REPORT INFORMATION
  Report Type: 
  Country: None (occurrence: None)
  Receive Date: 20120810
  Receipt Date: 20120805
  Transmission Date: 20120928
  Serious: Yes (Hospitalization)
  Sender: FDA-Public Use
  Company Number: JP-AMGEN-JPNCT2011018384

PATIENT
  Age: 68 Year
  Sex: Male
  Weight: 46 kg

DRUGS (4)
  1. FLUOROURACIL [Concomitant]
     Indication: COLORECTAL CANCER
     Route: 041
     Dates: start: 20101228, end: 20110223
  2. LEUCOVORIN CALCIUM [Concomitant]
     Indication: COLORECTAL CANCER
     Route: 041
     Dates: start: 20101228, end: 20110223
  3. PANITUMUMAB [Suspect]
     Indication: COLORECTAL CANCER
     Dosage: 290 MG, Q2WK
     Route: 041
     Dates: start: 20101228, end: 20110223
  4. TOPOTECAN [Suspect]
     Indication: COLORECTAL CANCER
     Route: 041
     Dates: start: 20101228, end: 20110223

REACTIONS (1)
  - INTERSTITIAL LUNG DISEASE [None]
